FAERS Safety Report 17502113 (Version 1)
Quarter: 2020Q1

REPORT INFORMATION
  Report Type: Report from Study
  Country: QA (occurrence: QA)
  Receive Date: 20200305
  Receipt Date: 20200305
  Transmission Date: 20200409
  Serious: Yes (Life-Threatening, Hospitalization)
  Sender: FDA-Public Use
  Company Number: QA-PFIZER INC-2020096334

PATIENT
  Sex: Female

DRUGS (1)
  1. DINOPROSTONE. [Suspect]
     Active Substance: DINOPROSTONE
     Indication: LABOUR INDUCTION
     Dosage: UNK

REACTIONS (2)
  - Uterine rupture [Unknown]
  - Broad ligament haematoma [Unknown]
